FAERS Safety Report 7522021-2 (Version None)
Quarter: 2011Q2

REPORT INFORMATION
  Report Type: 
  Country: None (occurrence: None)
  Receive Date: 20110523
  Receipt Date: 20110519
  Transmission Date: 20111010
  Serious: Yes (Other)
  Sender: FDA-Public Use
  Company Number: 2011028637

PATIENT
  Age: 79 Year
  Sex: Female

DRUGS (4)
  1. VIVAGLOBIN [Suspect]
  2. VIVAGLOBIN [Suspect]
     Indication: IMMUNODEFICIENCY
     Dosage: 160 MG/ML SOLUTION FOR PERFUSION (WEEKLY), SUBCUTANEOUS, SUBCUTANEOUS
     Route: 058
     Dates: start: 20101101, end: 20110401
  3. VIVAGLOBIN [Suspect]
  4. VIVAGLOBIN [Suspect]

REACTIONS (5)
  - PRODUCT QUALITY ISSUE [None]
  - BLOOD IMMUNOGLOBULIN G DECREASED [None]
  - DRUG INEFFECTIVE [None]
  - SPUTUM DISCOLOURED [None]
  - CHEST PAIN [None]
